FAERS Safety Report 7457102-5 (Version None)
Quarter: 2011Q2

REPORT INFORMATION
  Report Type: 
  Country: None (occurrence: None)
  Receive Date: 20110504
  Receipt Date: 20110419
  Transmission Date: 20111010
  Serious: Yes (Hospitalization)
  Sender: FDA-Public Use
  Company Number: PL-RANBAXY-2011RR-44032

PATIENT
  Age: 51 Year
  Sex: Male

DRUGS (9)
  1. INDAPAMIDE [Concomitant]
  2. SIMVASTATIN [Suspect]
     Dosage: 20 MG, UNK
  3. SPIRONOLACTONE [Suspect]
     Dosage: 50 MG, UNK
  4. QUINAPRIL [Suspect]
     Dosage: 20 MG, BID
  5. ASPIRIN [Concomitant]
  6. ISOSORBIDE MONONITRATE [Concomitant]
  7. BISOPROLOL FUMARATE [Concomitant]
  8. AMLODIPINE [Concomitant]
  9. INSULIN [Concomitant]

REACTIONS (6)
  - SYNCOPE [None]
  - HYPERKALAEMIA [None]
  - RHABDOMYOLYSIS [None]
  - ATRIOVENTRICULAR BLOCK COMPLETE [None]
  - DIARRHOEA [None]
  - MYALGIA [None]
